FAERS Safety Report 20572137 (Version 3)
Quarter: 2023Q1

REPORT INFORMATION
  Report Type: Spontaneous
  Country: US (occurrence: US)
  Receive Date: 20220309
  Receipt Date: 20230125
  Transmission Date: 20230418
  Serious: Yes (Other)
  Sender: FDA-Public Use
  Company Number: US-GILEAD-2022-0572927

PATIENT
  Age: 52 Year
  Sex: Male
  Weight: 72.562 kg

DRUGS (19)
  1. VIREAD [Suspect]
     Active Substance: TENOFOVIR DISOPROXIL FUMARATE
     Indication: HIV infection
     Dosage: UNK
     Route: 048
     Dates: start: 2001
  2. VIREAD [Suspect]
     Active Substance: TENOFOVIR DISOPROXIL FUMARATE
     Dosage: UNK
     Route: 048
     Dates: start: 200312, end: 200507
  3. TRUVADA [Suspect]
     Active Substance: EMTRICITABINE\TENOFOVIR DISOPROXIL FUMARATE
     Indication: HIV infection
     Dosage: UNK
     Route: 048
     Dates: start: 2001
  4. TRUVADA [Suspect]
     Active Substance: EMTRICITABINE\TENOFOVIR DISOPROXIL FUMARATE
     Dosage: UNK
     Route: 048
     Dates: start: 200507, end: 201208
  5. INVIRASE [Concomitant]
     Active Substance: SAQUINAVIR MESYLATE
     Indication: HIV infection
     Dosage: UNK
  6. ISENTRESS [Concomitant]
     Active Substance: RALTEGRAVIR POTASSIUM
     Indication: HIV infection
     Dosage: UNK
  7. KALETRA [Concomitant]
     Active Substance: LOPINAVIR\RITONAVIR
     Indication: HIV infection
     Dosage: UNK
     Dates: start: 2003, end: 2004
  8. LEXIVA [Concomitant]
     Active Substance: FOSAMPRENAVIR CALCIUM
     Indication: HIV infection
     Dosage: UNK
  9. NORVIR [Concomitant]
     Active Substance: RITONAVIR
     Indication: HIV infection
     Dosage: UNK
     Dates: start: 2004
  10. SELZENTRY [Concomitant]
     Active Substance: MARAVIROC
     Indication: HIV infection
     Dosage: UNK
     Dates: start: 200603
  11. VIDEX [Concomitant]
     Active Substance: DIDANOSINE
     Indication: HIV infection
     Dosage: UNK
     Dates: start: 2003, end: 2005
  12. ZIAGEN [Concomitant]
     Active Substance: ABACAVIR SULFATE
     Indication: HIV infection
     Dosage: UNK
     Dates: start: 2005
  13. ZERIT [Concomitant]
     Active Substance: STAVUDINE
     Indication: HIV infection
     Dosage: UNK
  14. TIVICAY [Concomitant]
     Active Substance: DOLUTEGRAVIR SODIUM
     Indication: HIV infection
     Dosage: UNK
  15. ELIQUIS [Concomitant]
     Active Substance: APIXABAN
     Indication: Cerebrovascular accident
     Dosage: UNK
  16. SILDENAFIL CITRATE [Concomitant]
     Active Substance: SILDENAFIL CITRATE
     Indication: Erectile dysfunction
     Dosage: UNK
     Dates: start: 2013
  17. SPIRIVA [Concomitant]
     Active Substance: TIOTROPIUM BROMIDE MONOHYDRATE
     Indication: Chronic obstructive pulmonary disease
     Dosage: UNK
  18. ALBUTEROL [Concomitant]
     Active Substance: ALBUTEROL
     Indication: Chronic obstructive pulmonary disease
     Dosage: UNK
  19. OXYCONTIN [Concomitant]
     Active Substance: OXYCODONE HYDROCHLORIDE
     Indication: Pain
     Dosage: UNK
     Dates: start: 2022

REACTIONS (8)
  - Renal impairment [Unknown]
  - Chronic kidney disease [Not Recovered/Not Resolved]
  - Pain [Not Recovered/Not Resolved]
  - Emotional distress [Not Recovered/Not Resolved]
  - Anxiety [Not Recovered/Not Resolved]
  - Anhedonia [Not Recovered/Not Resolved]
  - Blood creatinine increased [Not Recovered/Not Resolved]
  - Vitamin D deficiency [Not Recovered/Not Resolved]

NARRATIVE: CASE EVENT DATE: 20050701
